FAERS Safety Report 24779321 (Version 1)
Quarter: 2024Q4

REPORT INFORMATION
  Report Type: Spontaneous
  Country: US (occurrence: US)
  Receive Date: 20241226
  Receipt Date: 20241226
  Transmission Date: 20250115
  Serious: Yes (Hospitalization)
  Sender: NOVARTIS
  Company Number: US-002147023-NVSC2024US244391

PATIENT
  Sex: Female

DRUGS (1)
  1. PROMACTA [Suspect]
     Active Substance: ELTROMBOPAG OLAMINE
     Indication: Paroxysmal nocturnal haemoglobinuria
     Dosage: 75 MG, QD
     Route: 048
     Dates: start: 201812

REACTIONS (2)
  - Diarrhoea [Unknown]
  - Off label use [Unknown]
